FAERS Safety Report 9452601 (Version 1)
Quarter: 2013Q3

REPORT INFORMATION
  Report Type: Spontaneous
  Country: US (occurrence: US)
  Receive Date: 20130812
  Receipt Date: 20130812
  Transmission Date: 20140515
  Serious: No
  Sender: FDA-Public Use
  Company Number: US-PFIZER INC-2013231988

PATIENT
  Sex: Male

DRUGS (4)
  1. LYRICA [Suspect]
     Dosage: 100 MG A NIGHT
  2. LYRICA [Suspect]
     Dosage: 75 MG A NIGHT
  3. LYRICA [Suspect]
     Dosage: 25 MG A NIGHT
  4. VALIUM [Suspect]
     Dosage: 10 MG, UNK

REACTIONS (2)
  - Feeling abnormal [Unknown]
  - Malaise [Unknown]
